FAERS Safety Report 17197373 (Version 3)
Quarter: 2019Q4

REPORT INFORMATION
  Report Type: Spontaneous
  Country: JP (occurrence: JP)
  Receive Date: 20191224
  Receipt Date: 20191231
  Transmission Date: 20200122
  Serious: Yes (Death, Other)
  Sender: FDA-Public Use
  Company Number: JP-ASTRAZENECA-2019SF86091

PATIENT
  Age: 62 Year
  Sex: Female

DRUGS (1)
  1. LYNPARZA [Suspect]
     Active Substance: OLAPARIB
     Indication: OVARIAN CANCER
     Dosage: 400 MG, NUMBER OF SEPARATE DOSAGES UNKNOWN
     Route: 048

REACTIONS (5)
  - Metastases to lung [Unknown]
  - Malignant neoplasm progression [Fatal]
  - Intestinal metastasis [Unknown]
  - Anaemia [Unknown]
  - Haematochezia [Unknown]
